FAERS Safety Report 18254020 (Version 1)
Quarter: 2020Q3

REPORT INFORMATION
  Report Type: Report from Study
  Country: US (occurrence: US)
  Receive Date: 20200910
  Receipt Date: 20200910
  Transmission Date: 20201103
  Serious: Yes (Hospitalization)
  Sender: FDA-Public Use
  Company Number: US-JNJFOC-A-US2019-191009

PATIENT
  Age: 38 Year
  Sex: Female
  Weight: 56.24 kg

DRUGS (9)
  1. PLAQUENIL [Concomitant]
     Active Substance: HYDROXYCHLOROQUINE SULFATE
  2. ADCIRCA [Concomitant]
     Active Substance: TADALAFIL
  3. LASIX [Concomitant]
     Active Substance: FUROSEMIDE
     Dosage: UNK
  4. SILDENAFIL CITRATE. [Concomitant]
     Active Substance: SILDENAFIL CITRATE
  5. VELETRI [Suspect]
     Active Substance: EPOPROSTENOL
     Indication: PULMONARY HYPERTENSION
     Dosage: 9 NG/KG, PER MIN
     Route: 042
  6. VELETRI [Suspect]
     Active Substance: EPOPROSTENOL
     Dosage: 7 NG/KG, PER MIN
     Route: 042
     Dates: start: 201905
  7. PREDNISONE. [Concomitant]
     Active Substance: PREDNISONE
  8. VELETRI [Suspect]
     Active Substance: EPOPROSTENOL
     Dosage: 18 NG/KG, PER MIN
     Route: 042
  9. BACTRIM [Concomitant]
     Active Substance: SULFAMETHOXAZOLE\TRIMETHOPRIM

REACTIONS (18)
  - Headache [Not Recovered/Not Resolved]
  - Diarrhoea [Unknown]
  - Dyspnoea exertional [Recovering/Resolving]
  - Pain [Unknown]
  - Dry skin [Unknown]
  - Influenza like illness [Unknown]
  - Oropharyngeal pain [Unknown]
  - Increased tendency to bruise [Recovered/Resolved]
  - Flushing [Unknown]
  - Myalgia [Not Recovered/Not Resolved]
  - Catheter site pain [Unknown]
  - Cough [Unknown]
  - Pain in jaw [Not Recovered/Not Resolved]
  - Weight increased [Unknown]
  - Weight decreased [Not Recovered/Not Resolved]
  - Pyrexia [Unknown]
  - Dyspnoea [Unknown]
  - Platelet count decreased [Recovered/Resolved]
